FAERS Safety Report 14731173 (Version 2)
Quarter: 2018Q2

REPORT INFORMATION
  Report Type: Report from Study
  Country: FR (occurrence: FR)
  Receive Date: 20180406
  Receipt Date: 20180412
  Transmission Date: 20180711
  Serious: Yes (Life-Threatening, Other)
  Sender: FDA-Public Use
  Company Number: FR-JAZZ-2018-FR-005363

PATIENT

DRUGS (1)
  1. DEFITELIO [Suspect]
     Active Substance: DEFIBROTIDE SODIUM
     Indication: IMPAIRED HEALING
     Dosage: 27 MG/KG, QD
     Route: 042
     Dates: start: 20141107, end: 20141110

REACTIONS (4)
  - Clostridium difficile infection [Unknown]
  - Inappropriate schedule of drug administration [Unknown]
  - Gastritis haemorrhagic [Recovered/Resolved]
  - Ulcer haemorrhage [Unknown]

NARRATIVE: CASE EVENT DATE: 20141110
